FAERS Safety Report 5193655-8 (Version None)
Quarter: 2006Q4

REPORT INFORMATION
  Report Type: 
  Country: None (occurrence: None)
  Receive Date: 20061221
  Receipt Date: 20061211
  Transmission Date: 20070319
  Serious: Yes (Hospitalization, Disabling)
  Sender: FDA-Public Use
  Company Number: 8020692

PATIENT
  Age: 48 Year
  Sex: Female
  Weight: 38 kg

DRUGS (3)
  1. KEPPRA [Suspect]
     Indication: CONVULSION
     Dosage: 500 MG 1/D PO
     Route: 048
     Dates: start: 20060101, end: 20060101
  2. KEPPRA [Suspect]
     Indication: CONVULSION
     Dosage: 1000 MG 1/D PO
     Route: 048
     Dates: start: 20060101, end: 20060101
  3. KEPPRA [Suspect]
     Indication: CONVULSION
     Dosage: 500 MG 1/D PO
     Route: 048
     Dates: start: 20060101, end: 20060201

REACTIONS (4)
  - BALANCE DISORDER [None]
  - CREUTZFELDT-JAKOB DISEASE [None]
  - MOTOR DYSFUNCTION [None]
  - NEUROPATHY [None]
